FAERS Safety Report 6493387-X (Version None)
Quarter: 2009Q4

REPORT INFORMATION
  Report Type: 
  Country: None (occurrence: None)
  Receive Date: 20091214
  Receipt Date: 20091203
  Transmission Date: 20100525
  Serious: Yes (Other)
  Sender: FDA-Public Use
  Company Number: JP-BRISTOL-MYERS SQUIBB COMPANY-14887970

PATIENT
  Age: 35 Year
  Sex: Female

DRUGS (6)
  1. TAXOL [Suspect]
     Indication: BREAST CANCER
     Route: 041
  2. CYCLOPHOSPHAMIDE [Suspect]
     Indication: BREAST CANCER
  3. EPIRUBICIN HCL [Suspect]
     Indication: BREAST CANCER
     Route: 042
  4. ZOLEDRONIC ACID [Suspect]
     Indication: BREAST CANCER
     Route: 041
  5. TAMOXIFEN CITRATE [Suspect]
     Indication: BREAST CANCER
     Route: 041
  6. RADIOTHERAPY [Suspect]
     Indication: BREAST CANCER
     Dosage: 1 DOSAGE FORM = 50GY

REACTIONS (3)
  - APLASTIC ANAEMIA [None]
  - FEBRILE NEUTROPENIA [None]
  - PANCYTOPENIA [None]
